FAERS Safety Report 7226915-7 (Version None)
Quarter: 2011Q1

REPORT INFORMATION
  Report Type: 
  Country: None (occurrence: None)
  Receive Date: 20110105
  Receipt Date: 20101215
  Transmission Date: 20110831
  Serious: Yes (Hospitalization)
  Sender: FDA-Public Use
  Company Number: 023196

PATIENT
  Sex: Male
  Weight: 84 kg

DRUGS (2)
  1. ORFIRIL [Concomitant]
  2. VIMPAT [Suspect]
     Indication: EPILEPSY
     Dosage: 100 MG BID, ORAL
     Route: 048
     Dates: start: 20101011, end: 20101129

REACTIONS (15)
  - ATRIOVENTRICULAR BLOCK SECOND DEGREE [None]
  - COGNITIVE DISORDER [None]
  - MEMORY IMPAIRMENT [None]
  - APATHY [None]
  - SUPRAVENTRICULAR EXTRASYSTOLES [None]
  - DECREASED VIBRATORY SENSE [None]
  - CONVULSION [None]
  - SINUS ARREST [None]
  - VARICOSE VEIN [None]
  - OBSESSIVE-COMPULSIVE PERSONALITY DISORDER [None]
  - EXPRESSIVE LANGUAGE DISORDER [None]
  - MENTAL IMPAIRMENT [None]
  - MICTURITION URGENCY [None]
  - ARRHYTHMIA [None]
  - PSYCHOMOTOR RETARDATION [None]
